FAERS Safety Report 11950526 (Version 13)
Quarter: 2017Q1

REPORT INFORMATION
  Report Type: Spontaneous
  Country: US (occurrence: US)
  Receive Date: 20160126
  Receipt Date: 20170309
  Transmission Date: 20170428
  Serious: Yes (Hospitalization, Other)
  Sender: FDA-Public Use
  Company Number: US-PFIZER INC-2016012062

PATIENT
  Age: 65 Year
  Sex: Female
  Weight: 84.35 kg

DRUGS (5)
  1. SUTENT [Suspect]
     Active Substance: SUNITINIB MALATE
     Indication: COLON CANCER
     Dosage: 37.5 MG, CYCLIC (DAY 1-14 Q 21 DAYS/1 CAP FOR TWO WEEKS ON AND 1 WEEK OFF)
     Route: 048
     Dates: start: 20150321, end: 20161201
  2. SUTENT [Suspect]
     Active Substance: SUNITINIB MALATE
     Dosage: 37.5 MG, CYCLIC (DAY 1-14 Q 21 DAYS)
     Route: 048
     Dates: start: 20150321
  3. SUTENT [Suspect]
     Active Substance: SUNITINIB MALATE
     Indication: GASTROINTESTINAL STROMAL TUMOUR
     Dosage: 37.5 MG DAILY, CYCLIC (28 DAYS ON AND 14 DAYS OFF)
     Route: 048
     Dates: start: 20150316
  4. SUTENT [Suspect]
     Active Substance: SUNITINIB MALATE
     Dosage: 37.5 MG, CYCLIC (DAY 1-14 Q 21 DAYS)
     Route: 048
     Dates: start: 20161216
  5. SUTENT [Suspect]
     Active Substance: SUNITINIB MALATE
     Indication: BREAST CANCER METASTATIC
     Dosage: 37.5 MG, CYCLIC (DAYS 1-14 Q 21 DAYS)
     Route: 048
     Dates: start: 20150321, end: 20160610

REACTIONS (11)
  - Thrombocytopenia [Unknown]
  - Hyperkeratosis [Recovered/Resolved]
  - Gait disturbance [Unknown]
  - Headache [Unknown]
  - Cholelithiasis [Recovered/Resolved]
  - Decreased appetite [Unknown]
  - Pain in extremity [Recovered/Resolved]
  - Gastrooesophageal reflux disease [Unknown]
  - Diarrhoea [Recovered/Resolved]
  - Skin disorder [Recovered/Resolved]
  - Oral pain [Recovered/Resolved]

NARRATIVE: CASE EVENT DATE: 20160608
